FAERS Safety Report 8470399-8 (Version None)
Quarter: 2012Q2

REPORT INFORMATION
  Report Type: 
  Country: None (occurrence: None)
  Receive Date: 20120627
  Receipt Date: 20120621
  Transmission Date: 20120825
  Serious: No
  Sender: FDA-Public Use
  Company Number: NG-MUTUAL PHARMACEUTICAL COMPANY, INC.-QNSF20120009

PATIENT
  Age: 20 Year
  Sex: Female

DRUGS (5)
  1. DICLOFENAC SODIUM [Suspect]
     Indication: PRODUCT USED FOR UNKNOWN INDICATION
     Dates: start: 20030101, end: 20030101
  2. DIPYRONE INJ [Suspect]
     Indication: PRODUCT USED FOR UNKNOWN INDICATION
     Dates: start: 20030101, end: 20030101
  3. VITAMIN B COMPLEX CAP [Suspect]
     Indication: PRODUCT USED FOR UNKNOWN INDICATION
     Dates: start: 20030101, end: 20030101
  4. QUININE SULFATE [Suspect]
     Indication: MALARIA
     Dates: start: 20030101, end: 20030101
  5. PROMETHAZINE [Suspect]
     Indication: PRODUCT USED FOR UNKNOWN INDICATION
     Dates: start: 20030101, end: 20030101

REACTIONS (9)
  - RETINAL HAEMORRHAGE [None]
  - PUPILLARY REFLEX IMPAIRED [None]
  - MUSCULOSKELETAL DISCOMFORT [None]
  - EYE PAIN [None]
  - TUNNEL VISION [None]
  - EYE MOVEMENT DISORDER [None]
  - DIPLOPIA [None]
  - PAPILLOEDEMA [None]
  - STRABISMUS [None]
